FAERS Safety Report 13651093 (Version 1)
Quarter: 2017Q2

REPORT INFORMATION
  Report Type: Spontaneous
  Country: FR (occurrence: FR)
  Receive Date: 20170614
  Receipt Date: 20170614
  Transmission Date: 20170830
  Serious: Yes (Other)
  Sender: FDA-Public Use
  Company Number: FR-PFIZER INC-2017251410

PATIENT
  Age: 87 Year
  Sex: Male

DRUGS (1)
  1. ZOXAN [Suspect]
     Active Substance: DOXAZOSIN MESYLATE
     Dosage: 4 MG BETWEEN 04 PM AND 06 PM

REACTIONS (2)
  - Prostatic adenoma [Unknown]
  - Drug effect incomplete [Unknown]
